FAERS Safety Report 5202749-X (Version None)
Quarter: 2006Q4

REPORT INFORMATION
  Report Type: 
  Country: None (occurrence: None)
  Receive Date: 20061018
  Receipt Date: 20051012
  Transmission Date: 20070319
  Serious: Yes (Other)
  Sender: FDA-Public Use
  Company Number: PHEH2005US11418

PATIENT
  Age: 54 Year
  Sex: Female
  Weight: 65.3 kg

DRUGS (1)
  1. ZOMETA [Suspect]
     Indication: BREAST CANCER
     Dosage: 4 MG EVERY MONTH, INFUSION
     Dates: start: 20030505, end: 20051010

REACTIONS (1)
  - BLOOD CREATININE INCREASED [None]
